FAERS Safety Report 17407405 (Version 1)
Quarter: 2020Q1

REPORT INFORMATION
  Report Type: Spontaneous
  Country: US (occurrence: US)
  Receive Date: 20200128
  Receipt Date: 20200128
  Transmission Date: 20200409
  Serious: Yes (Hospitalization)
  Sender: FDA-Public Use
  Company Number: None

PATIENT
  Age: 57 Year
  Sex: Male

DRUGS (2)
  1. AMBRISENTAN 10MG ACTAVIS PHARMA [Suspect]
     Active Substance: AMBRISENTAN
     Indication: PULMONARY ARTERIAL HYPERTENSION
     Route: 048
     Dates: start: 20190821
  2. ALYQ [Concomitant]
     Active Substance: TADALAFIL

REACTIONS (3)
  - Appendicitis [None]
  - Pancreatitis [None]
  - Blood pressure decreased [None]

NARRATIVE: CASE EVENT DATE: 20191207
